FAERS Safety Report 21090837 (Version 1)
Quarter: 2022Q3

REPORT INFORMATION
  Report Type: Report from Study
  Country: RS (occurrence: RS)
  Receive Date: 20220716
  Receipt Date: 20220716
  Transmission Date: 20221027
  Serious: Yes (Hospitalization, Other)
  Sender: FDA-Public Use
  Company Number: RS-CELGENE-SBR-20191004037

PATIENT
  Sex: Male
  Weight: 83 kg

DRUGS (12)
  1. MESALAMINE [Concomitant]
     Active Substance: MESALAMINE
     Indication: Colitis ulcerative
     Dosage: 2 GRAM
     Route: 048
     Dates: start: 2016
  2. PANTOPRASOL [Concomitant]
     Indication: Gastritis prophylaxis
     Dosage: 20 MILLIGRAM
     Route: 048
     Dates: start: 2017
  3. DICLOFENAC [Concomitant]
     Active Substance: DICLOFENAC
     Indication: Pain
     Dosage: FREQUENCY TEXT: PRN
     Route: 048
     Dates: start: 20190903, end: 20190923
  4. DICLOFENAC [Concomitant]
     Active Substance: DICLOFENAC
     Dosage: FREQUENCY TEXT: ONCE?75/3 MG/ML
     Route: 048
     Dates: start: 20190929, end: 20190929
  5. ROSUVASTATIN [Concomitant]
     Active Substance: ROSUVASTATIN
     Indication: Lipoprotein abnormal
     Dosage: 20 MILLIGRAM
     Route: 048
     Dates: start: 20191007
  6. METFORMIN [Concomitant]
     Active Substance: METFORMIN HYDROCHLORIDE
     Indication: Hyperglycaemia
     Dosage: 2000 MILLIGRAM
     Route: 048
     Dates: start: 201910
  7. HYDROCHLOROTHIAZIDE W/ CILAZAPRIL [Concomitant]
     Active Substance: CILAZAPRIL ANHYDROUS\HYDROCHLOROTHIAZIDE
     Indication: Hypertension
     Dosage: 5.0/12.5MG/MG
     Route: 048
     Dates: start: 20191007
  8. AMLODIPINE [Concomitant]
     Active Substance: AMLODIPINE BESYLATE
     Indication: Hypertension
     Dosage: 5 MILLIGRAM
     Route: 048
     Dates: start: 20191007
  9. CEPHALEXIN [Concomitant]
     Active Substance: CEPHALEXIN
     Indication: Urinary tract infection
     Dosage: 1000 MILLIGRAM
     Route: 048
     Dates: start: 20191007, end: 20191014
  10. MELOXICAM [Concomitant]
     Active Substance: MELOXICAM
     Indication: Pain
     Dosage: DAILY DOSE : 5 MILLIGRAM/MILLILITERS?TOTAL DOSE : 20 MILLIGRAM/MILLILITERS?UNIT DOSE : 5 MILLIGRAM/M
     Route: 048
     Dates: start: 20190903, end: 20190907
  11. DIAZEPAM [Concomitant]
     Active Substance: DIAZEPAM
     Indication: Pain
     Dosage: 10/2MG/ML
     Route: 030
     Dates: start: 20190903, end: 20190907
  12. Bethamethasone sodium phosphate/etamethasone dipropionate [Concomitant]
     Indication: Back pain
     Dosage: FREQUENCY TEXT: ONCE?2/5 MG
     Route: 030
     Dates: start: 20190903, end: 20190903

REACTIONS (1)
  - Ischaemic stroke [Recovered/Resolved]

NARRATIVE: CASE EVENT DATE: 20190929
